FAERS Safety Report 20966375 (Version 1)
Quarter: 2022Q2

REPORT INFORMATION
  Report Type: Spontaneous
  Country: US (occurrence: None)
  Receive Date: 20220615
  Receipt Date: 20220615
  Transmission Date: 20220721
  Serious: Yes (Other)
  Sender: FDA-Public Use
  Company Number: None

PATIENT
  Age: 68 Year
  Sex: Female
  Weight: 67.5 kg

DRUGS (2)
  1. PAXLOVID [Suspect]
     Active Substance: NIRMATRELVIR\RITONAVIR
     Indication: COVID-19
     Dosage: FREQUENCY : TWICE A DAY;?
     Route: 048
     Dates: start: 20220501, end: 20220505
  2. Paxlovid 300-100 (repeat treatment for Rebound COVID-19) [Concomitant]
     Dates: start: 20220514, end: 20220518

REACTIONS (2)
  - COVID-19 [None]
  - Dysgeusia [None]

NARRATIVE: CASE EVENT DATE: 20220514
